FAERS Safety Report 8609611-0 (Version None)
Quarter: 2012Q3

REPORT INFORMATION
  Report Type: 
  Country: None (occurrence: None)
  Receive Date: 20120821
  Receipt Date: 20120807
  Transmission Date: 20120928
  Serious: Yes (Hospitalization, Other)
  Sender: FDA-Public Use
  Company Number: GB-WATSON-2012-14370

PATIENT
  Age: 28 Year
  Sex: Female

DRUGS (1)
  1. METOCLOPRAMIDE INJECTION [Suspect]
     Indication: NAUSEA
     Dosage: UNK
     Route: 065

REACTIONS (3)
  - DYSTONIA [None]
  - TACHYCARDIA [None]
  - HYPERHIDROSIS [None]
